FAERS Safety Report 5779483-0 (Version None)
Quarter: 2008Q2

REPORT INFORMATION
  Report Type: 
  Country: None (occurrence: None)
  Receive Date: 20080619
  Receipt Date: 20080609
  Transmission Date: 20081010
  Serious: Yes (Other)
  Sender: FDA-Public Use
  Company Number: US-ELI_LILLY_AND_COMPANY-US200804007520

PATIENT
  Age: 70 Year
  Sex: Female

DRUGS (18)
  1. CYMBALTA [Suspect]
     Indication: DIABETIC NEUROPATHY
     Dosage: 30 MG, ONE DOSE
     Dates: start: 20080428, end: 20080429
  2. MIRTAZAPINE [Concomitant]
     Dosage: 50 MG, DAILY (1/D)
  3. SULAR [Concomitant]
     Dosage: 20 MG, DAILY (1/D)
  4. CLONIDINE [Concomitant]
     Dosage: 0.1 MG, DAILY (1/D)
  5. PRILOSEC [Concomitant]
     Dosage: 1 D/F, QOD
  6. LISINOPRIL [Concomitant]
     Dosage: 20 MG, DAILY (1/D)
  7. HYDROCHLOROTHIAZIDE [Concomitant]
     Dosage: 25 MG, EACH MORNING
  8. VYTORIN [Concomitant]
     Dosage: TAKES 1/2 -10/20MG TAB
  9. FUROSEMIDE [Concomitant]
     Dosage: 20 MG, DAILY (1/D)
  10. MAXAIR [Concomitant]
     Dosage: 2 PUFFS EVERY MORNING
  11. SYSTANE                            /02034401/ [Concomitant]
     Dosage: UNK, EACH MORNING
  12. VICODIN ES [Concomitant]
     Indication: PAIN
     Dosage: 1 D/F, AS NEEDED
  13. DIAZEPAM [Concomitant]
     Dosage: 5 MG, AS NEEDED
  14. FLOVENT [Concomitant]
     Dosage: 220 UG, EACH MORNING
  15. PREDNISONE TAB [Concomitant]
     Dosage: 2.5 MG, QOD
  16. COLCHICINE [Concomitant]
     Dosage: 0.6 MG, DAILY (1/D)
  17. ASPIRIN [Concomitant]
     Dosage: 81 MG, DAILY (1/D)
  18. METFORMIN [Concomitant]
     Dosage: 500 MG, DAILY (1/D)

REACTIONS (1)
  - HYPERSENSITIVITY [None]
